FAERS Safety Report 6746344-X (Version None)
Quarter: 2010Q2

REPORT INFORMATION
  Report Type: 
  Country: None (occurrence: None)
  Receive Date: 20100528
  Receipt Date: 20100520
  Transmission Date: 20101027
  Serious: Yes (Death, Hospitalization, Other)
  Sender: FDA-Public Use
  Company Number: JP-PFIZER INC-2010054400

PATIENT
  Age: 74 Year
  Sex: Male

DRUGS (7)
  1. LIPITOR [Suspect]
     Indication: HYPERCHOLESTEROLAEMIA
     Dosage: 5 MG, DAILY
     Route: 048
     Dates: start: 20030603
  2. ASPIRIN [Concomitant]
     Dosage: UNK
     Route: 048
  3. FAMOTIDINE [Concomitant]
     Dosage: UNK
  4. PRIMPERAN TAB [Concomitant]
     Dosage: UNK
     Route: 048
  5. CONSTAN [Concomitant]
     Dosage: UNK
     Route: 048
  6. METLIGINE [Concomitant]
     Dosage: UNK
     Dates: start: 20010101
  7. MEVALOTIN [Concomitant]
     Dosage: UNK
     Dates: start: 20010101

REACTIONS (5)
  - ARTERIAL STENOSIS [None]
  - CHEST DISCOMFORT [None]
  - INTERSTITIAL LUNG DISEASE [None]
  - NASOPHARYNGITIS [None]
  - TREMOR [None]
